FAERS Safety Report 4487107-8 (Version None)
Quarter: 2004Q4

REPORT INFORMATION
  Report Type: 
  Country: None (occurrence: None)
  Receive Date: 20041027
  Receipt Date: 20041014
  Transmission Date: 20050328
  Serious: Yes (Other)
  Sender: FDA-Public Use
  Company Number: CH-GLAXOSMITHKLINE-B0349155A

PATIENT
  Sex: Female

DRUGS (12)
  1. ZOFRAN [Suspect]
     Indication: VOMITING
     Dosage: 24MG PER DAY
     Route: 042
     Dates: start: 20040825, end: 20040828
  2. ZAVEDOS [Suspect]
     Route: 042
     Dates: start: 20040824, end: 20040825
  3. NEXIUM [Concomitant]
     Dosage: 40MG PER DAY
     Route: 048
     Dates: start: 20040823
  4. ACETAMINOPHEN [Concomitant]
     Indication: PAIN
     Dosage: 2500MG PER DAY
     Route: 048
     Dates: start: 20040827, end: 20040827
  5. DUPHASTON [Concomitant]
     Dosage: 10MG TWICE PER DAY
     Route: 048
     Dates: start: 20040825, end: 20040827
  6. VALTREX [Concomitant]
     Indication: ANTIVIRAL PROPHYLAXIS
     Dosage: 500MG TWICE PER DAY
     Route: 048
     Dates: start: 20040824
  7. CYTOSAR-U [Concomitant]
     Route: 042
     Dates: start: 20040824, end: 20040828
  8. KONAKION [Concomitant]
     Indication: CHEMOTHERAPY
     Route: 042
     Dates: start: 20040828
  9. AZACTAM [Concomitant]
     Indication: AGRANULOCYTOSIS
     Route: 042
     Dates: start: 20040928
  10. TARGOCID [Concomitant]
     Indication: AGRANULOCYTOSIS
     Route: 042
     Dates: start: 20040927
  11. LIQUEMINE [Concomitant]
     Indication: THROMBOSIS PROPHYLAXIS
     Route: 042
     Dates: start: 20040923
  12. DIFLUCAN [Concomitant]
     Indication: INFECTION PROPHYLAXIS
     Dosage: 200MG PER DAY
     Route: 048
     Dates: start: 20040923

REACTIONS (2)
  - BRADYCARDIA [None]
  - BUNDLE BRANCH BLOCK LEFT [None]
